FAERS Safety Report 24035847 (Version 1)
Quarter: 2024Q3

REPORT INFORMATION
  Report Type: Spontaneous
  Country: CA (occurrence: CA)
  Receive Date: 20240701
  Receipt Date: 20240701
  Transmission Date: 20241016
  Serious: Yes (Other)
  Sender: NOVARTIS
  Company Number: CA-002147023-NVSC2024CA133080

PATIENT
  Age: 22 Year
  Sex: Female

DRUGS (4)
  1. IPTACOPAN [Suspect]
     Active Substance: IPTACOPAN
     Indication: Product used for unknown indication
     Dosage: UNK
     Route: 065
  2. SOLIRIS [Suspect]
     Active Substance: ECULIZUMAB
     Indication: Paroxysmal nocturnal haemoglobinuria
     Dosage: 600 MG, QW (1 EVERY 1 WEEKS)
     Route: 065
  3. SOLIRIS [Suspect]
     Active Substance: ECULIZUMAB
     Dosage: 900 MG, (1 EVERY 2 WEEKS)
     Route: 042
  4. SOLIRIS [Suspect]
     Active Substance: ECULIZUMAB
     Indication: Paroxysmal nocturnal haemoglobinuria
     Dosage: 600 MG, QW (1 EVERY 1 WEEKS)
     Route: 042

REACTIONS (14)
  - Asthenia [Recovered/Resolved]
  - Alanine aminotransferase increased [Recovered/Resolved]
  - Blood urine present [Recovered/Resolved]
  - Decreased appetite [Recovered/Resolved]
  - Dehydration [Recovered/Resolved]
  - Diabetes mellitus [Recovered/Resolved]
  - Hypersomnia [Recovered/Resolved]
  - Menstrual disorder [Recovered/Resolved]
  - Menstruation delayed [Recovered/Resolved]
  - Nausea [Recovered/Resolved]
  - Parosmia [Recovered/Resolved]
  - Vomiting [Recovered/Resolved]
  - Weight decreased [Recovered/Resolved]
  - Fatigue [Recovered/Resolved]
